FAERS Safety Report 17667861 (Version 1)
Quarter: 2020Q2

REPORT INFORMATION
  Report Type: Spontaneous
  Country: US (occurrence: US)
  Receive Date: 20200414
  Receipt Date: 20200414
  Transmission Date: 20200713
  Serious: No
  Sender: FDA-Public Use
  Company Number: US-BAUSCH-BL-2020-008383

PATIENT
  Age: 72 Year
  Sex: Female

DRUGS (1)
  1. POLYMYXIN B SULFATE AND TRIMETHOPRIM [Suspect]
     Active Substance: POLYMYXIN B SULFATE\TRIMETHOPRIM SULFATE
     Indication: PREOPERATIVE CARE
     Route: 047
     Dates: start: 20200315, end: 20200316

REACTIONS (5)
  - Eye movement disorder [Unknown]
  - Dry eye [Recovered/Resolved]
  - Eye irritation [Recovered/Resolved]
  - Abnormal sensation in eye [Not Recovered/Not Resolved]
  - Eye pain [Unknown]

NARRATIVE: CASE EVENT DATE: 20200315
